FAERS Safety Report 9430672 (Version 1)
Quarter: 2013Q3

REPORT INFORMATION
  Report Type: Report from Study
  Country: US (occurrence: US)
  Receive Date: 20130730
  Receipt Date: 20130730
  Transmission Date: 20140515
  Serious: No
  Sender: FDA-Public Use
  Company Number: US-ABBOTT-13P-163-1088793-00

PATIENT
  Sex: Male
  Weight: 129.39 kg

DRUGS (3)
  1. NIASPAN (COATED) [Suspect]
     Indication: LIPOPROTEIN (A) ABNORMAL
     Dosage: AT BEDTIME
     Route: 048
  2. NIASPAN (COATED) [Suspect]
     Indication: LIPOPROTEIN (A) ABNORMAL
     Dates: start: 20130426
  3. LISINOPRIL [Concomitant]
     Indication: PRODUCT USED FOR UNKNOWN INDICATION
     Route: 048

REACTIONS (3)
  - Constipation [Not Recovered/Not Resolved]
  - Flushing [Recovered/Resolved]
  - Inappropriate schedule of drug administration [Unknown]
